FAERS Safety Report 13020153 (Version 1)
Quarter: 2016Q4

REPORT INFORMATION
  Report Type: Spontaneous
  Country: US (occurrence: US)
  Receive Date: 20161212
  Receipt Date: 20161212
  Transmission Date: 20170207
  Serious: Yes (Other)
  Sender: FDA-Public Use
  Company Number: US-SA-2016SA223231

PATIENT
  Age: 58 Year
  Sex: Female

DRUGS (2)
  1. VITAMIN D3 [Concomitant]
     Active Substance: CHOLECALCIFEROL
  2. AUBAGIO [Suspect]
     Active Substance: TERIFLUNOMIDE
     Indication: MULTIPLE SCLEROSIS
     Route: 048
     Dates: start: 20161102

REACTIONS (4)
  - Headache [Unknown]
  - Depressed mood [Unknown]
  - Decreased interest [Unknown]
  - Brain oedema [Unknown]

NARRATIVE: CASE EVENT DATE: 201611
